FAERS Safety Report 5867857-9 (Version None)
Quarter: 2008Q3

REPORT INFORMATION
  Report Type: 
  Country: None (occurrence: None)
  Receive Date: 20080902
  Receipt Date: 20080827
  Transmission Date: 20090109
  Serious: Yes (Other)
  Sender: FDA-Public Use
  Company Number: US-BAXTER-2008BH008670

PATIENT
  Age: 29 Year
  Sex: Female

DRUGS (13)
  1. HEPARIN SODIUM INJECTION [Suspect]
     Indication: DRUG USE FOR UNKNOWN INDICATION
     Route: 065
     Dates: start: 20070501, end: 20071001
  2. HEPARIN SODIUM INJECTION [Suspect]
     Route: 065
     Dates: start: 20070101, end: 20080101
  3. LOVENOX [Suspect]
     Indication: DRUG USE FOR UNKNOWN INDICATION
     Dosage: DOSE UNIT:UNKNOWN
     Route: 065
     Dates: start: 20070101, end: 20070501
  4. LOVENOX [Suspect]
     Dosage: DOSE UNIT:UNKNOWN
     Route: 065
     Dates: start: 20071001, end: 20070101
  5. LOPRESSOR [Concomitant]
     Indication: DRUG USE FOR UNKNOWN INDICATION
     Route: 065
  6. LABOTOL [Concomitant]
     Indication: DRUG USE FOR UNKNOWN INDICATION
     Route: 065
  7. VICODIN [Concomitant]
     Indication: DRUG USE FOR UNKNOWN INDICATION
     Route: 065
  8. PERCOCET [Concomitant]
     Indication: DRUG USE FOR UNKNOWN INDICATION
     Route: 065
  9. VITAMIN D [Concomitant]
     Indication: VITAMIN SUPPLEMENTATION
     Route: 065
  10. ASCORBIC ACID [Concomitant]
     Indication: VITAMIN SUPPLEMENTATION
     Route: 065
  11. POTASSIUM CHLORIDE [Concomitant]
     Indication: MINERAL SUPPLEMENTATION
     Route: 065
  12. PREDNISONE TAB [Concomitant]
     Indication: MINERAL SUPPLEMENTATION
     Route: 065
  13. PROMEZALINE [Concomitant]
     Indication: MINERAL SUPPLEMENTATION
     Route: 065

REACTIONS (13)
  - ABDOMINAL PAIN [None]
  - ALOPECIA [None]
  - BUTTERFLY RASH [None]
  - CHEST PAIN [None]
  - DEHYDRATION [None]
  - GALLBLADDER DISORDER [None]
  - HYPOKALAEMIA [None]
  - HYPOTENSION [None]
  - INFLUENZA LIKE ILLNESS [None]
  - PERICARDITIS [None]
  - POLYP [None]
  - PYREXIA [None]
  - RENAL DISORDER [None]
